FAERS Safety Report 10635980 (Version 2)
Quarter: 2014Q4

REPORT INFORMATION
  Report Type: Report from Study
  Country: US (occurrence: US)
  Receive Date: 20141205
  Receipt Date: 20141219
  Transmission Date: 20150529
  Serious: Yes (Hospitalization)
  Sender: FDA-Public Use
  Company Number: US-TAKEDA-2014TUS013240

PATIENT
  Age: 80 Year
  Sex: Female
  Weight: 96.15 kg

DRUGS (20)
  1. PLACEBO [Suspect]
     Active Substance: UNSPECIFIED INGREDIENT
     Indication: CARDIOVASCULAR EVENT PROPHYLAXIS
     Dosage: 15 MG, QD
     Route: 048
     Dates: start: 20110707, end: 20110811
  2. PLACEBO [Suspect]
     Active Substance: UNSPECIFIED INGREDIENT
     Dosage: 45 MG, QD
     Route: 048
     Dates: start: 20110831, end: 20110926
  3. BLINDED PIOGLITAZONE [Suspect]
     Active Substance: PIOGLITAZONE
     Dosage: 30 MG, QD
     Route: 048
     Dates: start: 20111031, end: 20111130
  4. PLACEBO [Suspect]
     Active Substance: UNSPECIFIED INGREDIENT
     Dosage: 30 MG, QD
     Route: 048
     Dates: start: 20110812, end: 20110830
  5. BLINDED PIOGLITAZONE [Suspect]
     Active Substance: PIOGLITAZONE
     Dosage: 15 MG, QD
     Route: 048
     Dates: start: 20120317, end: 20140617
  6. PLACEBO [Suspect]
     Active Substance: UNSPECIFIED INGREDIENT
     Dosage: 15 MG, QD
     Route: 048
     Dates: start: 20120317, end: 20140617
  7. OMEPRAZOLE. [Concomitant]
     Active Substance: OMEPRAZOLE
     Dosage: 20 MG, QD
     Route: 048
  8. BLINDED PIOGLITAZONE [Suspect]
     Active Substance: PIOGLITAZONE
     Dosage: 15 MG, QD
     Route: 048
     Dates: start: 20111019, end: 20111030
  9. PLACEBO [Suspect]
     Active Substance: UNSPECIFIED INGREDIENT
     Dosage: UNK
  10. BLINDED PIOGLITAZONE [Suspect]
     Active Substance: PIOGLITAZONE
     Dosage: 7.5 MG, QD
     Route: 048
     Dates: start: 20111004, end: 20111018
  11. SINTHROME [Concomitant]
     Active Substance: ACENOCOUMAROL
     Dosage: 1 MG, QD
     Route: 048
  12. BLINDED PIOGLITAZONE [Suspect]
     Active Substance: PIOGLITAZONE
     Indication: CARDIOVASCULAR EVENT PROPHYLAXIS
     Dosage: 15 MG, QD
     Route: 048
     Dates: start: 20110707, end: 20110811
  13. BLINDED PIOGLITAZONE [Suspect]
     Active Substance: PIOGLITAZONE
     Dosage: 30 MG, QD
     Route: 048
     Dates: start: 20110812, end: 20110830
  14. BLINDED PIOGLITAZONE [Suspect]
     Active Substance: PIOGLITAZONE
     Dosage: UNK
  15. BETAHISTINE [Concomitant]
     Active Substance: BETAHISTINE
     Dosage: 15 MG,  PRN
     Route: 048
  16. ETODOLAC. [Concomitant]
     Active Substance: ETODOLAC
     Dosage: 300 MG, BID
     Route: 048
  17. BLINDED PIOGLITAZONE [Suspect]
     Active Substance: PIOGLITAZONE
     Dosage: 45 MG, QD
     Route: 048
     Dates: start: 20110831, end: 20110926
  18. PLACEBO [Suspect]
     Active Substance: UNSPECIFIED INGREDIENT
     Dosage: 30 MG, QD
     Route: 048
     Dates: start: 20111031, end: 20111130
  19. PLACEBO [Suspect]
     Active Substance: UNSPECIFIED INGREDIENT
     Dosage: 7.5 MG, QD
     Route: 048
     Dates: start: 20111004, end: 20111018
  20. PLACEBO [Suspect]
     Active Substance: UNSPECIFIED INGREDIENT
     Dosage: 15 MG, QD
     Route: 048
     Dates: start: 20111019, end: 20111030

REACTIONS (3)
  - Pubis fracture [Not Recovered/Not Resolved]
  - Arthralgia [Not Recovered/Not Resolved]
  - Fall [Not Recovered/Not Resolved]

NARRATIVE: CASE EVENT DATE: 20140808
